FAERS Safety Report 10017160 (Version 1)
Quarter: 2014Q1

REPORT INFORMATION
  Report Type: Report from Study
  Country: US (occurrence: US)
  Receive Date: 20140318
  Receipt Date: 20140318
  Transmission Date: 20141002
  Serious: Yes (Other)
  Sender: FDA-Public Use
  Company Number: US-ROCHE-1362858

PATIENT
  Sex: Female

DRUGS (3)
  1. ACTEMRA [Suspect]
     Indication: RHEUMATOID ARTHRITIS
     Route: 058
  2. ALBUTEROL INHALER [Concomitant]
  3. ENBREL [Concomitant]
     Route: 065

REACTIONS (4)
  - Erythema [Unknown]
  - Oedema [Unknown]
  - Pruritus [Unknown]
  - Asthma [Unknown]
